FAERS Safety Report 9894694 (Version 2)
Quarter: 2014Q1

REPORT INFORMATION
  Report Type: Spontaneous
  Country: US (occurrence: US)
  Receive Date: 20140213
  Receipt Date: 20140227
  Transmission Date: 20141002
  Serious: No
  Sender: FDA-Public Use
  Company Number: US-GILEAD-2014-0094178

PATIENT
  Age: 62 Year
  Sex: Male

DRUGS (4)
  1. SOVALDI [Suspect]
     Indication: HEPATITIS C
     Dosage: 400 MG, BID
     Route: 065
     Dates: start: 20140207, end: 20140207
  2. SOVALDI [Suspect]
     Dosage: 400 MG, QD
     Route: 065
     Dates: start: 20140111
  3. RIBAVIRIN [Concomitant]
     Dosage: 600 MG, BID
  4. PEGINTERFERON [Concomitant]
     Dosage: 180 MG, Q1WK
     Route: 058

REACTIONS (1)
  - Accidental overdose [Recovered/Resolved]
